FAERS Safety Report 8493949-4 (Version None)
Quarter: 2012Q3

REPORT INFORMATION
  Report Type: 
  Country: None (occurrence: None)
  Receive Date: 20120709
  Receipt Date: 20120629
  Transmission Date: 20120928
  Serious: Yes (Other)
  Sender: FDA-Public Use
  Company Number: US-AMGEN-USASP2012040560

PATIENT
  Age: 72 Year
  Sex: Female

DRUGS (3)
  1. CARDIAC THERAPY [Concomitant]
  2. PROLIA [Suspect]
     Indication: OSTEOPOROSIS POSTMENOPAUSAL
     Dosage: 60 MG, Q6MO
     Dates: start: 20111201
  3. DRUG USED IN DIABETES [Concomitant]

REACTIONS (2)
  - STENT PLACEMENT [None]
  - MYALGIA [None]
